FAERS Safety Report 8064748-2 (Version None)
Quarter: 2012Q1

REPORT INFORMATION
  Report Type: 
  Country: None (occurrence: None)
  Receive Date: 20120124
  Receipt Date: 20120116
  Transmission Date: 20120608
  Serious: Yes (Other)
  Sender: FDA-Public Use
  Company Number: US-RB-033265-12

PATIENT
  Age: 44 Year
  Sex: Female

DRUGS (3)
  1. MUCINEX [Suspect]
     Indication: PRODUCT USED FOR UNKNOWN INDICATION
     Route: 048
  2. ALLEGRA [Concomitant]
  3. CRANBERRY TABLETS [Concomitant]

REACTIONS (12)
  - APHASIA [None]
  - LIP SWELLING [None]
  - FEELING ABNORMAL [None]
  - TREMOR [None]
  - NAUSEA [None]
  - HYPOAESTHESIA ORAL [None]
  - FALL [None]
  - DYSGEUSIA [None]
  - DYSARTHRIA [None]
  - VISION BLURRED [None]
  - OEDEMA PERIPHERAL [None]
  - DYSSTASIA [None]
